FAERS Safety Report 23820260 (Version 2)
Quarter: 2024Q2

REPORT INFORMATION
  Report Type: Spontaneous
  Country: IN (occurrence: IN)
  Receive Date: 20240506
  Receipt Date: 20240612
  Transmission Date: 20240716
  Serious: Yes (Other)
  Sender: FDA-Public Use
  Company Number: IN-PFIZER INC-PV202400057859

PATIENT
  Age: 69 Year
  Sex: Male
  Weight: 86.6 kg

DRUGS (1)
  1. LORLATINIB [Suspect]
     Active Substance: LORLATINIB
     Dosage: 100 MG, 1X/DAY
     Route: 048
     Dates: start: 20240124

REACTIONS (4)
  - Pleurodesis [Unknown]
  - Heart rate increased [Unknown]
  - Productive cough [Unknown]
  - Oedema peripheral [Unknown]
